FAERS Safety Report 7450769-7 (Version None)
Quarter: 2011Q2

REPORT INFORMATION
  Report Type: 
  Country: None (occurrence: None)
  Receive Date: 20110422
  Receipt Date: 20110414
  Transmission Date: 20111010
  Serious: Yes (Hospitalization)
  Sender: FDA-Public Use
  Company Number: 1000020249

PATIENT
  Age: 83 Year
  Sex: Female
  Weight: 68 kg

DRUGS (14)
  1. SEROQUEL (QUETIAPINE FUMARATE) (TABLETS-) (QUETIAPINE FUMARATE) [Concomitant]
  2. DULCOLAX (BISACODYL) (TABLETS) (BISACODYL) [Concomitant]
  3. LASIX (FUROSEMIDE) (TABLETS) (FUROSEMIDE) [Concomitant]
  4. LISINOPRIL [Concomitant]
  5. AERIUS (EBASTINE) (EBASTINE) [Concomitant]
  6. CAL-D-VITA (COLECALCIFEROL, CALCIUM CARBONATE) (TABLETS) (COLECALCIFER [Concomitant]
  7. NOVOLOG [Concomitant]
  8. ESCITALOPRAM [Suspect]
     Indication: DEPRESSION
     Dosage: 10 MG (10 MG,1 IN 1 D), ORAL
     Route: 048
  9. OLEOVIT D3 (COLECALCIFEROL) (TABLETS) (COLECALCIFEROL) [Concomitant]
  10. DOMINAL FORTE (PROTHIPENDYL HYDROCHLORIDE) [Concomitant]
  11. LISINOPRIL HCT (LISINOPRIL DIHYDRATE, HYDOCHLOROTHIAZIDE) [Concomitant]
  12. ARICEPT (DONEPEZIL) (TABLETS) (DONEPEZIL) [Concomitant]
  13. LANTUS (INSULIN GLARGINE) (INJECTION) (INSULINE GLARGINE) [Concomitant]
  14. MEXALEN (PARACETAMOL) (TABLETS) (PARACETAMOL) [Concomitant]

REACTIONS (1)
  - DRUG RASH WITH EOSINOPHILIA AND SYSTEMIC SYMPTOMS [None]
